FAERS Safety Report 9092921 (Version 1)
Quarter: 2013Q1

REPORT INFORMATION
  Report Type: Spontaneous
  Country: FR (occurrence: FR)
  Receive Date: 20130201
  Receipt Date: 20130201
  Transmission Date: 20140127
  Serious: Yes (Hospitalization, Other)
  Sender: FDA-Public Use
  Company Number: FR-PFIZER INC-2013040819

PATIENT
  Age: 83 Year
  Sex: Female

DRUGS (6)
  1. CORDARONE [Suspect]
     Indication: ATRIAL FIBRILLATION
     Dosage: 200 MG, 1X/DAY
     Route: 048
     Dates: end: 20120619
  2. ATARAX [Concomitant]
     Dosage: UNK
  3. DIFFU K [Concomitant]
     Dosage: UNK
  4. LEXOMIL [Concomitant]
     Dosage: UNK
  5. LOSARTAN POTASSIUM [Concomitant]
     Dosage: UNK
  6. LOPERAMIDE [Concomitant]
     Dosage: UNK

REACTIONS (2)
  - Endocarditis [Unknown]
  - Hyperthyroidism [Recovered/Resolved]
